FAERS Safety Report 7890451-5 (Version None)
Quarter: 2011Q4

REPORT INFORMATION
  Report Type: 
  Country: None (occurrence: None)
  Receive Date: 20111103
  Receipt Date: 20110721
  Transmission Date: 20120403
  Serious: No
  Sender: FDA-Public Use
  Company Number: US-AMGEN-USASP2011038012

PATIENT
  Age: 41 Year
  Sex: Female

DRUGS (11)
  1. ENBREL [Suspect]
     Indication: PRODUCT USED FOR UNKNOWN INDICATION
     Dosage: UNK, WEEKLY
  2. FOLIC ACID [Concomitant]
     Dosage: UNK, 1X/DAY
  3. TYLENOL W/ CODEINE [Concomitant]
     Dosage: UNK
  4. VICODIN [Concomitant]
     Indication: PAIN
     Dosage: UNK,AS NEEDED
  5. CELEBREX [Concomitant]
     Dosage: UNK
  6. METHOTREXATE SODIUM [Suspect]
     Dosage: UNK
  7. MOBIC [Concomitant]
     Dosage: UNK
  8. METHOTREXATE SODIUM [Suspect]
     Dosage: 10 TABLETS, UNK
  9. LEXAPRO [Concomitant]
     Dosage: UNK, 1X/DAY
  10. PREDNISONE [Concomitant]
     Dosage: 20 MG, UNK
     Dates: end: 20100101
  11. VIOXX [Concomitant]
     Dosage: 25 MG, UNK

REACTIONS (3)
  - MALABSORPTION [None]
  - DRUG INEFFECTIVE [None]
  - MIGRAINE [None]
